FAERS Safety Report 12574531 (Version 1)
Quarter: 2016Q3

REPORT INFORMATION
  Report Type: Spontaneous
  Country: US (occurrence: US)
  Receive Date: 20160720
  Receipt Date: 20160720
  Transmission Date: 20161109
  Serious: Yes (Hospitalization, Other)
  Sender: FDA-Public Use
  Company Number: US-GLAXOSMITHKLINE-US2016101973

PATIENT
  Sex: Female

DRUGS (4)
  1. PROAIR HFA [Concomitant]
     Active Substance: ALBUTEROL SULFATE
  2. ANORO ELLIPTA [Suspect]
     Active Substance: UMECLIDINIUM BROMIDE\VILANTEROL TRIFENATATE
     Indication: CHRONIC OBSTRUCTIVE PULMONARY DISEASE
     Dosage: UNK
     Route: 055
     Dates: start: 2015
  3. ELIQUIS [Concomitant]
     Active Substance: APIXABAN
  4. DILTIAZEM. [Concomitant]
     Active Substance: DILTIAZEM

REACTIONS (5)
  - Chest pain [Unknown]
  - Drug ineffective [Not Recovered/Not Resolved]
  - Painful respiration [Unknown]
  - Wheezing [Unknown]
  - Renal failure [Not Recovered/Not Resolved]

NARRATIVE: CASE EVENT DATE: 2015
